FAERS Safety Report 8588429-1 (Version None)
Quarter: 2012Q3

REPORT INFORMATION
  Report Type: 
  Country: None (occurrence: None)
  Receive Date: 20120813
  Receipt Date: 20120808
  Transmission Date: 20120928
  Serious: No
  Sender: FDA-Public Use
  Company Number: US-PFIZER INC-2012194285

PATIENT
  Age: 85 Year
  Sex: Female
  Weight: 68.027 kg

DRUGS (9)
  1. LYRICA [Suspect]
     Indication: SCRATCH
  2. PREVACID [Concomitant]
     Indication: GASTROOESOPHAGEAL REFLUX DISEASE
     Dosage: 30 MG, DAILY
  3. LYRICA [Suspect]
     Indication: HERPES ZOSTER
  4. LASIX [Concomitant]
     Dosage: 40 MG, DAILY
  5. POTASSIUM [Concomitant]
     Dosage: 20 MEQ, DAILY
  6. VITAMIN B6 [Concomitant]
     Dosage: 50 MG, DAILY
  7. LYRICA [Suspect]
     Indication: MUSCLE SPASMS
     Dosage: 75 MG, DAILY
     Dates: start: 20120801
  8. LYRICA [Suspect]
     Indication: NEUROPATHY PERIPHERAL
  9. TOPROL-XL [Concomitant]
     Indication: DIABETES MELLITUS
     Dosage: 50 MG, DAILY

REACTIONS (2)
  - HAIR COLOUR CHANGES [None]
  - OFF LABEL USE [None]
